FAERS Safety Report 20762170 (Version 1)
Quarter: 2022Q2

REPORT INFORMATION
  Report Type: Spontaneous
  Country: CO (occurrence: CO)
  Receive Date: 20220428
  Receipt Date: 20220428
  Transmission Date: 20220721
  Serious: Yes (Other)
  Sender: FDA-Public Use
  Company Number: CO-NOVARTISPH-NVSC2022CO095948

PATIENT
  Age: 86 Year
  Sex: Male
  Weight: 60 kg

DRUGS (3)
  1. BROLUCIZUMAB [Suspect]
     Active Substance: BROLUCIZUMAB
     Indication: Macular degeneration
     Dosage: 6 MG, QMO
     Route: 031
     Dates: start: 20220222, end: 20220222
  2. BROLUCIZUMAB [Suspect]
     Active Substance: BROLUCIZUMAB
     Indication: Maculopathy
     Dosage: UNK
     Route: 065
     Dates: start: 20220310, end: 20220330
  3. BROLUCIZUMAB [Suspect]
     Active Substance: BROLUCIZUMAB
     Dosage: UNK (LEFT EYE)
     Route: 065

REACTIONS (3)
  - Vitreous degeneration [Recovered/Resolved]
  - Cyclitis [Recovering/Resolving]
  - Drug ineffective [Unknown]

NARRATIVE: CASE EVENT DATE: 20220310
